FAERS Safety Report 24836650 (Version 1)
Quarter: 2025Q1

REPORT INFORMATION
  Report Type: Spontaneous
  Country: US (occurrence: None)
  Receive Date: 20250113
  Receipt Date: 20250113
  Transmission Date: 20250409
  Serious: Yes (Disabling)
  Sender: FDA-CTU
  Company Number: None

PATIENT
  Sex: Male
  Weight: 72 kg

DRUGS (3)
  1. SERTRALINE [Suspect]
     Active Substance: SERTRALINE HYDROCHLORIDE
  2. ATORVASTATIN [Concomitant]
     Active Substance: ATORVASTATIN
  3. B-RIGHT VITAMIN B COMPLEX FOR IMMUNE HEALTH.^ [Concomitant]

REACTIONS (11)
  - Negative thoughts [None]
  - Sexual dysfunction [None]
  - Loss of libido [None]
  - Sexual dysfunction [None]
  - Anorgasmia [None]
  - Genital hypoaesthesia [None]
  - Genital hypoaesthesia [None]
  - Testicular pain [None]
  - Withdrawal syndrome [None]
  - Paraesthesia [None]
  - Autonomic nervous system imbalance [None]
